FAERS Safety Report 7454391-8 (Version None)
Quarter: 2011Q2

REPORT INFORMATION
  Report Type: 
  Country: None (occurrence: None)
  Receive Date: 20110503
  Receipt Date: 20110426
  Transmission Date: 20111010
  Serious: Yes (Other)
  Sender: FDA-Public Use
  Company Number: US-BAYER-2011-011860

PATIENT
  Age: 20 Year
  Sex: Female
  Weight: 82.54 kg

DRUGS (1)
  1. MIRENA [Suspect]
     Indication: CONTRACEPTION
     Dosage: UNK
     Dates: start: 20110126, end: 20110126

REACTIONS (4)
  - VAGINAL HAEMORRHAGE [None]
  - UTERINE PERFORATION [None]
  - UTERINE SPASM [None]
  - CERVICAL CYST [None]
